FAERS Safety Report 7094011-8 (Version None)
Quarter: 2010Q4

REPORT INFORMATION
  Report Type: 
  Country: None (occurrence: None)
  Receive Date: 20101110
  Receipt Date: 20101103
  Transmission Date: 20110411
  Serious: Yes (Hospitalization)
  Sender: FDA-Public Use
  Company Number: US-ELI_LILLY_AND_COMPANY-US200906001547

PATIENT
  Sex: Male
  Weight: 125.8 kg

DRUGS (19)
  1. BYETTA [Suspect]
     Dates: start: 20061001, end: 20061201
  2. BYETTA [Suspect]
     Dosage: 5 UG, 2/D
     Route: 065
     Dates: start: 20080501
  3. BYETTA [Suspect]
     Dosage: 10 UG, 2/D
     Route: 058
     Dates: start: 20080401, end: 20080826
  4. ACTOS [Concomitant]
     Dosage: 15 MG, DAILY (1/D)
  5. METFORMIN HCL [Concomitant]
     Dosage: 1000 MG, 2/D
  6. METOPROLOL [Concomitant]
     Dosage: 25 MG, DAILY (1/D)
  7. NEURONTIN [Concomitant]
     Dosage: 600 MG, 2/D
  8. HYDROCHLOROTHIAZIDE [Concomitant]
     Dosage: 12.5 MG, DAILY (1/D)
  9. GLIPIZIDE [Concomitant]
     Dosage: 10 MG, 2/D
  10. PLENDIL [Concomitant]
     Dosage: 10 MG, DAILY (1/D)
  11. KLOR-CON [Concomitant]
     Dosage: 20 MEQ, DAILY (1/D)
  12. LISINOPRIL [Concomitant]
     Dosage: 40 MG, DAILY (1/D)
  13. ADVAIR DISKUS 100/50 [Concomitant]
     Dosage: UNK, 2/D
  14. COMBIVENT [Concomitant]
     Dosage: UNK, AS NEEDED
  15. LANTUS [Concomitant]
     Dosage: 50 U, EACH MORNING
  16. ACIPHEX [Concomitant]
     Indication: HELICOBACTER INFECTION
     Dosage: 20 MG, 2/D
     Dates: start: 20080825
  17. AMOXICILLIN [Concomitant]
     Indication: HELICOBACTER INFECTION
     Dosage: UNK, UNKNOWN
     Dates: start: 20080825
  18. BIAXIN [Concomitant]
     Dosage: UNK, UNKNOWN
  19. PROTONIX [Concomitant]
     Dosage: 40 MG, DAILY (1/D)
     Route: 042
     Dates: start: 20080801

REACTIONS (2)
  - OFF LABEL USE [None]
  - PANCREATITIS ACUTE [None]
